FAERS Safety Report 9912394 (Version 2)
Quarter: 2014Q1

REPORT INFORMATION
  Report Type: Spontaneous
  Country: JP (occurrence: JP)
  Receive Date: 20140220
  Receipt Date: 20140320
  Transmission Date: 20141002
  Serious: Yes (Hospitalization)
  Sender: FDA-Public Use
  Company Number: JP-009507513-1402JPN007583

PATIENT
  Age: 26 Year
  Sex: Female

DRUGS (2)
  1. REFLEX [Suspect]
     Indication: DEPRESSION
     Dosage: 350 MG, ONCE
     Route: 048
     Dates: start: 20140210, end: 20140210
  2. MYSLEE [Suspect]
     Indication: PRODUCT USED FOR UNKNOWN INDICATION
     Dosage: 345 MG, ONCE
     Route: 048
     Dates: start: 20140211, end: 20140211

REACTIONS (1)
  - Serotonin syndrome [Recovering/Resolving]
